FAERS Safety Report 4471878-0 (Version None)
Quarter: 2004Q4

REPORT INFORMATION
  Report Type: 
  Country: None (occurrence: None)
  Receive Date: 20041006
  Receipt Date: 20040922
  Transmission Date: 20050328
  Serious: Yes (Hospitalization)
  Sender: FDA-Public Use
  Company Number: 2004-00554

PATIENT
  Age: 62 Year
  Sex: Female

DRUGS (3)
  1. VELCADE [Suspect]
     Dosage: 2.00 MG , IV BOLUS
     Route: 040
     Dates: start: 20040830
  2. INSULIN [Concomitant]
  3. COUMADIN [Concomitant]

REACTIONS (5)
  - CATHETER RELATED INFECTION [None]
  - CHILLS [None]
  - PYREXIA [None]
  - TACHYCARDIA [None]
  - TOOTH ABSCESS [None]
